FAERS Safety Report 5026412-3 (Version None)
Quarter: 2006Q2

REPORT INFORMATION
  Report Type: 
  Country: None (occurrence: None)
  Receive Date: 20060615
  Receipt Date: 20060605
  Transmission Date: 20061013
  Serious: Yes (Other)
  Sender: FDA-Public Use
  Company Number: 2006UW11129

PATIENT
  Sex: Female

DRUGS (5)
  1. ATACAND [Suspect]
     Indication: HYPERTENSION
     Route: 048
  2. SINEMET [Concomitant]
  3. NAMENDA [Concomitant]
  4. LEXAPRO [Concomitant]
  5. TYRAMINE [Concomitant]

REACTIONS (2)
  - PARKINSON'S DISEASE [None]
  - PHAEOCHROMOCYTOMA [None]
